FAERS Safety Report 9145731 (Version 1)
Quarter: 2013Q1

REPORT INFORMATION
  Report Type: Spontaneous
  Country: US (occurrence: None)
  Receive Date: 20130201
  Receipt Date: 20130201
  Transmission Date: 20140127
  Serious: Yes (Death)
  Sender: FDA-Public Use
  Company Number: NSR_00822_2013

PATIENT
  Age: 49 Year
  Sex: Female

DRUGS (5)
  1. BACLOFEN [Suspect]
     Indication: PRODUCT USED FOR UNKNOWN INDICATION
     Dosage: (DF)
     Route: 048
  2. DILTIAZEM [Suspect]
     Dosage: (DF)
     Route: 048
  3. ACETAMINOPHEN  W / HYDROCODONE [Suspect]
     Dosage: (DF)
     Route: 048
  4. ETHANOL [Suspect]
     Dosage: (DF)
     Route: 048
  5. DIAZEPAM [Suspect]
     Dosage: (DF)
     Route: 048

REACTIONS (2)
  - Completed suicide [None]
  - Poisoning [None]
